FAERS Safety Report 9970796 (Version 1)
Quarter: 2014Q1

REPORT INFORMATION
  Report Type: Report from Study
  Country: US (occurrence: US)
  Receive Date: 20140306
  Receipt Date: 20140306
  Transmission Date: 20141002
  Serious: No
  Sender: FDA-Public Use
  Company Number: US-ABBVIE-13P-163-1150745-00

PATIENT
  Age: 17 Year
  Sex: Male

DRUGS (5)
  1. HUMIRA [Suspect]
     Indication: JUVENILE IDIOPATHIC ARTHRITIS
     Dates: start: 201306
  2. METHOTREXATE [Concomitant]
     Indication: JUVENILE IDIOPATHIC ARTHRITIS
     Dosage: WEEKLY
     Route: 058
  3. LAMOTRIGINE [Concomitant]
     Indication: CONVULSION
     Dosage: 100MG DAILY
  4. DEPAKOTE [Concomitant]
     Indication: CONVULSION
     Dosage: 125MG DAILY
  5. ERYTHROMYCIN [Concomitant]
     Indication: PHARYNGITIS STREPTOCOCCAL
     Dosage: 500MG DAILY FOR 5 DAYS

REACTIONS (1)
  - Pharyngitis streptococcal [Recovering/Resolving]
